FAERS Safety Report 5857741-9 (Version None)
Quarter: 2008Q3

REPORT INFORMATION
  Report Type: 
  Country: None (occurrence: None)
  Receive Date: 20080826
  Receipt Date: 20080826
  Transmission Date: 20090109
  Serious: Yes (Life-Threatening, Hospitalization, Disabling, Other)
  Sender: FDA-Public Use
  Company Number: None

PATIENT
  Age: 65 Year
  Sex: Female
  Weight: 71.2147 kg

DRUGS (2)
  1. HEPARIN [Suspect]
     Indication: HAEMODIALYSIS
     Dosage: INTRA-ARTICULAR
     Route: 014
     Dates: start: 20080715, end: 20080816
  2. HEPARIN [Suspect]
     Indication: INDWELLING CATHETER MANAGEMENT
     Dosage: INTRA-ARTICULAR
     Route: 014
     Dates: start: 20080715, end: 20080816

REACTIONS (6)
  - ANAEMIA [None]
  - CARDIAC ARREST [None]
  - DRUG HYPERSENSITIVITY [None]
  - GASTROINTESTINAL ULCER HAEMORRHAGE [None]
  - GRAND MAL CONVULSION [None]
  - PLATELET COUNT DECREASED [None]
